FAERS Safety Report 11404517 (Version 1)
Quarter: 2015Q3

REPORT INFORMATION
  Report Type: Spontaneous
  Country: IT (occurrence: IT)
  Receive Date: 20150821
  Receipt Date: 20150821
  Transmission Date: 20151125
  Serious: Yes (Other)
  Sender: FDA-Public Use
  Company Number: PHHY2015IT098165

PATIENT
  Age: 25 Year
  Sex: Female

DRUGS (1)
  1. WARFARIN [Suspect]
     Active Substance: WARFARIN
     Indication: RHEUMATIC HEART DISEASE
     Route: 065

REACTIONS (3)
  - Thrombosis [Recovering/Resolving]
  - Cardiogenic shock [Recovering/Resolving]
  - Maternal exposure during pregnancy [Recovering/Resolving]
